FAERS Safety Report 22387308 (Version 1)
Quarter: 2023Q2

REPORT INFORMATION
  Report Type: Spontaneous
  Country: US (occurrence: US)
  Receive Date: 20230531
  Receipt Date: 20230531
  Transmission Date: 20230721
  Serious: Yes (Other)
  Sender: FDA-Public Use
  Company Number: US-BEH-2023159179

PATIENT
  Age: 7 Year
  Sex: Male

DRUGS (4)
  1. IDELVION [Suspect]
     Active Substance: COAGULATION FACTOR IX RECOMBINANT HUMAN
     Indication: Factor IX deficiency
     Dosage: 250 INTERNATIONAL UNIT, QW AND PRN
     Route: 042
     Dates: start: 201610
  2. IDELVION [Suspect]
     Active Substance: COAGULATION FACTOR IX RECOMBINANT HUMAN
     Indication: Factor IX deficiency
     Dosage: 250 INTERNATIONAL UNIT, QW AND PRN
     Route: 042
     Dates: start: 201610
  3. IDELVION [Suspect]
     Active Substance: COAGULATION FACTOR IX RECOMBINANT HUMAN
     Dosage: 1000 INTERNATIONAL UNIT, QW AND PRN
     Route: 042
     Dates: start: 201610
  4. IDELVION [Suspect]
     Active Substance: COAGULATION FACTOR IX RECOMBINANT HUMAN
     Dosage: 1000 INTERNATIONAL UNIT, QW AND PRN
     Route: 042
     Dates: start: 201610

REACTIONS (1)
  - Haemarthrosis [Unknown]

NARRATIVE: CASE EVENT DATE: 20230506
